FAERS Safety Report 5603964-3 (Version None)
Quarter: 2008Q1

REPORT INFORMATION
  Report Type: 
  Country: None (occurrence: None)
  Receive Date: 20080124
  Receipt Date: 20080124
  Transmission Date: 20080703
  Serious: Yes (Hospitalization)
  Sender: FDA-Public Use
  Company Number: None

PATIENT
  Age: 19 Year
  Sex: Female
  Weight: 54.4316 kg

DRUGS (1)
  1. PROPOFOL [Suspect]
     Indication: SURGERY
     Dosage: 200MG IN SURGERY IV
     Route: 042
     Dates: start: 20071207

REACTIONS (5)
  - CHOREA [None]
  - HYPOAESTHESIA ORAL [None]
  - POST PROCEDURAL COMPLICATION [None]
  - TINNITUS [None]
  - VISION BLURRED [None]
